FAERS Safety Report 4576577-2 (Version None)
Quarter: 2005Q1

REPORT INFORMATION
  Report Type: 
  Country: None (occurrence: None)
  Receive Date: 20050119
  Receipt Date: 20040921
  Transmission Date: 20050727
  Serious: Yes (Hospitalization)
  Sender: FDA-Public Use
  Company Number: A03200403254

PATIENT
  Age: 65 Year
  Sex: Male

DRUGS (18)
  1. PLAVIX [Suspect]
     Dosage: ORAL
     Route: 048
  2. COUMADIN [Suspect]
     Indication: CARDIAC OPERATION
     Dosage: 1 MG EVERY OTHER DAY - ORAL
     Route: 048
  3. COUMADIN [Suspect]
     Indication: POSTOPERATIVE CARE
     Dosage: 1 MG EVERY OTHER DAY - ORAL
     Route: 048
  4. GLIPIZIDE [Concomitant]
  5. NITROGLYCERIN [Concomitant]
  6. ASPIRIN [Suspect]
     Dosage: 325 MG QD - ORAL
     Route: 048
  7. STUDY DEVICE - UNKNOWN - UNKNOWN - UNIT DOSE : UNKNOWN [Suspect]
     Dates: end: 20040911
  8. METOPROLOL TARTRATE [Concomitant]
  9. GUAIFENESIN [Concomitant]
  10. AZITHROMYCIN [Concomitant]
  11. LANSOPRAZOLE [Concomitant]
  12. VALSARTAN [Concomitant]
  13. DIPHENHYDRAMINE HCL [Concomitant]
  14. EPOGEN [Concomitant]
  15. SEVELAMER HYDROCHLORIDE [Concomitant]
  16. AMIODARONE HYDROCHLORIDE [Concomitant]
  17. POTASSIUM CHLORIDE [Concomitant]
  18. SORBITOL [Concomitant]

REACTIONS (4)
  - HAEMORRHOIDS [None]
  - LOWER GASTROINTESTINAL HAEMORRHAGE [None]
  - LUNG INFILTRATION [None]
  - OESOPHAGITIS [None]
